FAERS Safety Report 21560969 (Version 2)
Quarter: 2023Q1

REPORT INFORMATION
  Report Type: Report from Study
  Country: US (occurrence: US)
  Receive Date: 20221107
  Receipt Date: 20230214
  Transmission Date: 20230418
  Serious: Yes (Hospitalization)
  Sender: FDA-Public Use
  Company Number: US-UPSHER-SMITH LABORATORIES, LLC-2022USL00881

PATIENT
  Sex: Male

DRUGS (2)
  1. VIGADRONE [Suspect]
     Active Substance: VIGABATRIN
     Dosage: UNK
     Dates: start: 20211013
  2. VIGADRONE [Suspect]
     Active Substance: VIGABATRIN
     Dosage: UNK

REACTIONS (3)
  - Respiratory disorder [Not Recovered/Not Resolved]
  - Ileus [Unknown]
  - Dyspnoea [Not Recovered/Not Resolved]
